FAERS Safety Report 6922118-1 (Version None)
Quarter: 2010Q3

REPORT INFORMATION
  Report Type: 
  Country: None (occurrence: None)
  Receive Date: 20100812
  Receipt Date: 20100804
  Transmission Date: 20110219
  Serious: Yes (Other)
  Sender: FDA-Public Use
  Company Number: GB-ABBOTT-10P-167-0658902-00

PATIENT
  Sex: Female
  Weight: 69 kg

DRUGS (5)
  1. HUMIRA [Suspect]
     Indication: RHEUMATOID ARTHRITIS
     Route: 058
     Dates: start: 20050801, end: 20100620
  2. METHOTREXATE [Concomitant]
     Indication: RHEUMATOID ARTHRITIS
     Route: 048
     Dates: start: 20100722
  3. OMEPRAZOLE [Concomitant]
     Indication: GASTRIC DISORDER
     Route: 048
  4. OMEPRAZOLE [Concomitant]
     Indication: PROPHYLAXIS
  5. RISEDRONATE SODIUM [Concomitant]
     Indication: OSTEOPOROSIS
     Route: 048

REACTIONS (10)
  - ANTINUCLEAR ANTIBODY POSITIVE [None]
  - COUGH [None]
  - DOUBLE STRANDED DNA ANTIBODY POSITIVE [None]
  - DRUG INEFFECTIVE [None]
  - ERYTHEMA [None]
  - NODULE ON EXTREMITY [None]
  - ONYCHOCLASIS [None]
  - PAIN IN EXTREMITY [None]
  - RED BLOOD CELL SEDIMENTATION RATE INCREASED [None]
  - RHEUMATOID ARTHRITIS [None]
